FAERS Safety Report 17025979 (Version 1)
Quarter: 2019Q4

REPORT INFORMATION
  Report Type: Spontaneous
  Country: HU (occurrence: HU)
  Receive Date: 20191113
  Receipt Date: 20191113
  Transmission Date: 20200122
  Serious: Yes (Other)
  Sender: FDA-Public Use
  Company Number: HU-BIODELIVERY SCIENCES INTERNATIONAL-2019BDSI0898

PATIENT
  Age: 80 Year
  Sex: Male

DRUGS (3)
  1. AMLODIPINE BESILATE [Concomitant]
     Active Substance: AMLODIPINE BESYLATE
     Indication: PRODUCT USED FOR UNKNOWN INDICATION
     Route: 065
  2. FENTANYL CITRATE. [Suspect]
     Active Substance: FENTANYL CITRATE
     Indication: BONE PAIN
     Dosage: 25 MICG/72 HOURS
     Route: 065
  3. FENTANYL. [Suspect]
     Active Substance: FENTANYL
     Indication: BONE PAIN
     Dosage: 25 MICG/72 HOURS
     Route: 065

REACTIONS (2)
  - Renal impairment [Unknown]
  - Anuria [Unknown]

NARRATIVE: CASE EVENT DATE: 20180110
